FAERS Safety Report 4412484-3 (Version None)
Quarter: 2004Q2

REPORT INFORMATION
  Report Type: 
  Country: None (occurrence: None)
  Receive Date: 20040630
  Receipt Date: 20040421
  Transmission Date: 20050107
  Serious: No
  Sender: FDA-Public Use
  Company Number: 04P-163-0258211-00

PATIENT
  Age: 68 Year
  Sex: Female
  Weight: 75.2971 kg

DRUGS (5)
  1. HUMIRA [Suspect]
     Indication: RHEUMATOID ARTHRITIS
     Dosage: 40 MG, 1 IN 14 D, SUBCUTANEOUS
     Route: 058
     Dates: start: 20031001
  2. CELECOXIB [Concomitant]
  3. HYDROXYCHLOROQUINE PHOSPHATE [Concomitant]
  4. PENICILLIN [Concomitant]
  5. THYROXINE [Concomitant]

REACTIONS (1)
  - INJECTION SITE BURNING [None]
